FAERS Safety Report 6938668-8 (Version None)
Quarter: 2010Q3

REPORT INFORMATION
  Report Type: 
  Country: None (occurrence: None)
  Receive Date: 20100824
  Receipt Date: 20100810
  Transmission Date: 20110219
  Serious: Yes (Hospitalization)
  Sender: FDA-Public Use
  Company Number: PHHY2009JP38527

PATIENT
  Sex: Female

DRUGS (5)
  1. TASIGNA [Suspect]
     Indication: CHRONIC MYELOID LEUKAEMIA
     Dosage: 400 MG, DAILY
     Route: 048
     Dates: start: 20090819, end: 20090828
  2. PREDNISOLONE [Concomitant]
     Indication: PROPHYLAXIS
     Dosage: 10 MG, UNK
     Dates: start: 20090819
  3. PREDNISOLONE [Concomitant]
     Dosage: 20 MG, DAILY
     Route: 048
     Dates: end: 20091006
  4. GLYCYRON [Concomitant]
     Dosage: 4 DF, UNK
     Route: 048
     Dates: start: 20090909
  5. APLACE [Concomitant]
     Dosage: 2 DF, UNK
     Route: 048
     Dates: start: 20090909

REACTIONS (2)
  - BLOOD GLUCOSE INCREASED [None]
  - HEPATIC FUNCTION ABNORMAL [None]
